FAERS Safety Report 20056364 (Version 1)
Quarter: 2021Q4

REPORT INFORMATION
  Report Type: Spontaneous
  Country: US (occurrence: US)
  Receive Date: 20211111
  Receipt Date: 20211111
  Transmission Date: 20220303
  Serious: No
  Sender: FDA-Public Use
  Company Number: US-JNJFOC-20211101477

PATIENT
  Age: 78 Year
  Sex: Female

DRUGS (1)
  1. PEPCID COMPLETE [Suspect]
     Active Substance: CALCIUM CARBONATE\FAMOTIDINE\MAGNESIUM HYDROXIDE
     Indication: Gastrooesophageal reflux disease
     Dosage: UNKNOWN TO REPORTER BUT STARTED PRIOR TO THE /OCT/2021 BACK SURGERY? 28/OCT/2021 - FIVE DOSES OF ON
     Route: 048
     Dates: start: 202110

REACTIONS (2)
  - Eructation [Not Recovered/Not Resolved]
  - Overdose [Unknown]

NARRATIVE: CASE EVENT DATE: 20211028
